FAERS Safety Report 4538546-8 (Version None)
Quarter: 2004Q4

REPORT INFORMATION
  Report Type: 
  Country: None (occurrence: None)
  Receive Date: 20041221
  Receipt Date: 20041118
  Transmission Date: 20050328
  Serious: Yes (Death)
  Sender: FDA-Public Use
  Company Number: MK200412-0031-1

PATIENT
  Age: 30 Year
  Sex: 0

DRUGS (2)
  1. METHADOSE [Suspect]
     Dates: start: 20030101
  2. MORPHINE [Suspect]
     Dates: start: 20030101

REACTIONS (1)
  - MULTIPLE DRUG OVERDOSE INTENTIONAL [None]
